FAERS Safety Report 9921245 (Version 1)
Quarter: 2014Q1

REPORT INFORMATION
  Report Type: Spontaneous
  Country: US (occurrence: None)
  Receive Date: 20140221
  Receipt Date: 20140221
  Transmission Date: 20141002
  Serious: Yes (Other)
  Sender: FDA-Public Use
  Company Number: None

PATIENT
  Age: 7 Year
  Sex: Male
  Weight: 24 kg

DRUGS (2)
  1. BACTRIM [Suspect]
     Indication: HAEMATURIA
     Dosage: 2 TSP QHS PO
     Route: 048
     Dates: start: 20140206, end: 20140213
  2. BACTRIM [Suspect]
     Indication: PROPHYLAXIS URINARY TRACT INFECTION
     Dosage: 2 TSP QHS PO
     Route: 048
     Dates: start: 20140206, end: 20140213

REACTIONS (6)
  - Confusional state [None]
  - Disturbance in attention [None]
  - Insomnia [None]
  - Mood altered [None]
  - Suicidal ideation [None]
  - Social avoidant behaviour [None]
